FAERS Safety Report 16540205 (Version 1)
Quarter: 2019Q3

REPORT INFORMATION
  Report Type: Spontaneous
  Country: US (occurrence: US)
  Receive Date: 20190708
  Receipt Date: 20190708
  Transmission Date: 20191004
  Serious: No
  Sender: FDA-Public Use
  Company Number: US-009507513-1906USA010282

PATIENT
  Sex: Female

DRUGS (3)
  1. KEYTRUDA [Suspect]
     Active Substance: PEMBROLIZUMAB
     Indication: PRODUCT USED FOR UNKNOWN INDICATION
     Dosage: UNK, Q3W
     Dates: start: 20190507
  2. VALTREX [Concomitant]
     Active Substance: VALACYCLOVIR HYDROCHLORIDE
  3. NIRAPARIB [Suspect]
     Active Substance: NIRAPARIB
     Indication: MALIGNANT PERITONEAL NEOPLASM
     Dosage: 100 MILLIGRAM, PM WITH FOOD
     Dates: start: 20190511

REACTIONS (10)
  - Blood creatinine increased [Unknown]
  - Constipation [Unknown]
  - Underdose [Unknown]
  - Vomiting [Unknown]
  - Herpes zoster [Unknown]
  - Back pain [Unknown]
  - Blood sodium decreased [Unknown]
  - White blood cell count decreased [Unknown]
  - Rash pruritic [Unknown]
  - Nausea [Unknown]
